FAERS Safety Report 15466391 (Version 1)
Quarter: 2018Q4

REPORT INFORMATION
  Report Type: Spontaneous
  Country: US (occurrence: US)
  Receive Date: 20181004
  Receipt Date: 20181004
  Transmission Date: 20190204
  Serious: No
  Sender: FDA-Public Use
  Company Number: US-ACTELION-A-NJ2018-179486

PATIENT
  Age: 40 Year
  Sex: Female

DRUGS (10)
  1. FIORICET [Concomitant]
     Active Substance: ACETAMINOPHEN\BUTALBITAL\CAFFEINE
  2. POTASSIUM [Concomitant]
     Active Substance: POTASSIUM
  3. LASIX [Concomitant]
     Active Substance: FUROSEMIDE
  4. PLAQUENIL [Concomitant]
     Active Substance: HYDROXYCHLOROQUINE SULFATE
  5. TEMAZEPAM. [Concomitant]
     Active Substance: TEMAZEPAM
  6. OPSUMIT [Suspect]
     Active Substance: MACITENTAN
     Indication: PRODUCT USED FOR UNKNOWN INDICATION
     Dosage: 10 MG, QD
     Route: 048
  7. PREDNISONE. [Concomitant]
     Active Substance: PREDNISONE
  8. COUMADIN [Concomitant]
     Active Substance: WARFARIN SODIUM
  9. CALCIUM [Concomitant]
     Active Substance: CALCIUM
  10. PREVACID [Concomitant]
     Active Substance: LANSOPRAZOLE

REACTIONS (2)
  - Product dose omission [Unknown]
  - Memory impairment [Unknown]
